FAERS Safety Report 8591802-9 (Version None)
Quarter: 2012Q3

REPORT INFORMATION
  Report Type: 
  Country: None (occurrence: None)
  Receive Date: 20120814
  Receipt Date: 20120807
  Transmission Date: 20120928
  Serious: Yes (Hospitalization)
  Sender: FDA-Public Use
  Company Number: PHHY2012IN068970

PATIENT
  Age: 46 Year
  Sex: Male

DRUGS (5)
  1. CYCLOSPORINE [Suspect]
     Dosage: 3 MG/KG, PER DAY
  2. MYCOPHENOLATE MOFETIL [Concomitant]
     Dosage: 1 G, BID
  3. PREDNISOLONE [Concomitant]
     Dosage: 12.5 MG, PER DAY
  4. CYCLOSPORINE [Suspect]
     Dosage: 8 MG/KG, PER DAY IN 2 DIVIDED DOSES
  5. PREDNISOLONE [Concomitant]
     Dosage: 20 MG, PER DAY

REACTIONS (11)
  - ASPERGILLOSIS [None]
  - COUGH [None]
  - RENAL ANEURYSM [None]
  - KLEBSIELLA INFECTION [None]
  - CHILLS [None]
  - HAEMOGLOBIN DECREASED [None]
  - PYREXIA [None]
  - BRONCHOPULMONARY ASPERGILLOSIS [None]
  - ANURIA [None]
  - URINE OUTPUT DECREASED [None]
  - RENAL ARTERY OCCLUSION [None]
